FAERS Safety Report 4384626-X (Version None)
Quarter: 2004Q2

REPORT INFORMATION
  Report Type: 
  Country: None (occurrence: None)
  Receive Date: 20040625
  Receipt Date: 20030902
  Transmission Date: 20050107
  Serious: No
  Sender: FDA-Public Use
  Company Number: US-BRISTOL-MYERS SQUIBB COMPANY-12372165

PATIENT
  Sex: Male

DRUGS (1)
  1. SINEMET CR [Suspect]
     Indication: PARKINSON'S DISEASE
     Dosage: SPLIT 50/200MG CR TABLET IN HALF (25/100MG).
     Route: 048

REACTIONS (4)
  - HYPERHIDROSIS [None]
  - MEDICATION ERROR [None]
  - MOVEMENT DISORDER [None]
  - SPEECH DISORDER [None]
